FAERS Safety Report 7518325-X (Version None)
Quarter: 2011Q2

REPORT INFORMATION
  Report Type: 
  Country: None (occurrence: None)
  Receive Date: 20110602
  Receipt Date: 20091115
  Transmission Date: 20111010
  Serious: Yes (Death, Other)
  Sender: FDA-Public Use
  Company Number: US-BAYER-200939828NA

PATIENT
  Age: 71 Year
  Sex: Male
  Weight: 83.9 kg

DRUGS (12)
  1. LISINOPRIL [Concomitant]
     Dosage: 5 MG, BID
     Route: 048
     Dates: start: 20011011
  2. TRASYLOL [Suspect]
     Indication: CORONARY ARTERY BYPASS
  3. ATIVAN [Concomitant]
     Dosage: UNK
     Dates: start: 20040129
  4. TRASYLOL [Suspect]
     Indication: MITRAL VALVE REPAIR
  5. TOPROL-XL [Concomitant]
     Dosage: 50 MG, QD
     Route: 048
     Dates: start: 20011011
  6. VERSED [Concomitant]
     Dosage: UNK
     Dates: start: 20040129
  7. ACETYLSALICYLIC ACID SRT [Concomitant]
     Dosage: 81 MG, QD
     Route: 048
  8. VASOTEC [Concomitant]
  9. AMIODARONE HCL [Concomitant]
     Dosage: UNK
     Dates: start: 20040129
  10. ANCEF [Concomitant]
     Dosage: UNK
     Dates: start: 20040129
  11. TRASYLOL [Suspect]
     Indication: AORTIC VALVE REPLACEMENT
     Dosage: 200 ML
     Route: 042
     Dates: start: 20040129, end: 20040129
  12. TRASYLOL [Suspect]
     Indication: AORTIC ANEURYSM REPAIR

REACTIONS (6)
  - RENAL FAILURE [None]
  - DEATH [None]
  - EMOTIONAL DISTRESS [None]
  - UNEVALUABLE EVENT [None]
  - INJURY [None]
  - ANXIETY [None]
